FAERS Safety Report 5525172-7 (Version None)
Quarter: 2007Q4

REPORT INFORMATION
  Report Type: 
  Country: None (occurrence: None)
  Receive Date: 20071126
  Receipt Date: 20071115
  Transmission Date: 20080405
  Serious: Yes (Death)
  Sender: FDA-Public Use
  Company Number: CH-NOVOPROD-259391

PATIENT
  Age: 78 Year
  Sex: Female
  Weight: 91 kg

DRUGS (9)
  1. MIXTARD 30 HM [Suspect]
     Indication: TYPE 1 DIABETES MELLITUS
     Dosage: 20 U, BID
     Route: 058
  2. TOREM                              /01036501/ [Concomitant]
     Dates: end: 20060905
  3. SORTIS                             /01326102/ [Concomitant]
     Dosage: 10 MG, QD
     Route: 048
     Dates: end: 20060905
  4. LANSOPRAZOLE [Concomitant]
     Dosage: 15 MG, QD
     Route: 048
     Dates: end: 20060905
  5. METFIN [Concomitant]
     Dosage: 850 MG, BID
     Route: 048
     Dates: end: 20060905
  6. ACTOS [Concomitant]
     Dosage: 30 MG, QD
     Route: 048
     Dates: end: 20060905
  7. METOPROLOL SUCCINATE [Concomitant]
     Dosage: 50 MG, QD
     Route: 048
     Dates: end: 20060905
  8. COVERSUM COMBI [Concomitant]
     Dosage: 1.25/4  MG, QD
     Route: 048
     Dates: end: 20060905
  9. ASPIRIN [Concomitant]
     Dosage: 300 MG, QD
     Route: 048
     Dates: end: 20060905

REACTIONS (1)
  - ACCIDENTAL OVERDOSE [None]
